FAERS Safety Report 6214391-2 (Version None)
Quarter: 2009Q2

REPORT INFORMATION
  Report Type: 
  Country: None (occurrence: None)
  Receive Date: 20090604
  Receipt Date: 20090527
  Transmission Date: 20091009
  Serious: Yes (Other)
  Sender: FDA-Public Use
  Company Number: MX-NOVOPROD-286390

PATIENT
  Age: 54 Year
  Sex: Male
  Weight: 66.3 kg

DRUGS (1)
  1. LEVEMIR [Suspect]
     Indication: DRUG USE FOR UNKNOWN INDICATION
     Dosage: 10 IU, QD
     Dates: start: 20070920, end: 20070930

REACTIONS (1)
  - MYOCARDIAL INFARCTION [None]
